FAERS Safety Report 6245000-4 (Version None)
Quarter: 2009Q2

REPORT INFORMATION
  Report Type: 
  Country: None (occurrence: None)
  Receive Date: 20090625
  Receipt Date: 20090619
  Transmission Date: 20091009
  Serious: Yes (Other)
  Sender: FDA-Public Use
  Company Number: US-JNJFOC-20090607398

PATIENT
  Sex: Male

DRUGS (4)
  1. IMODIUM A-D [Suspect]
     Route: 048
  2. IMODIUM A-D [Suspect]
     Indication: DIARRHOEA
     Route: 048
  3. LOMOTIL [Concomitant]
     Indication: DIARRHOEA
     Route: 065
  4. UNKNOWN MEDICATION [Concomitant]
     Route: 065

REACTIONS (3)
  - INCORRECT DOSE ADMINISTERED [None]
  - PRODUCT TAMPERING [None]
  - THERAPEUTIC RESPONSE DECREASED [None]
